FAERS Safety Report 5827779-6 (Version None)
Quarter: 2008Q3

REPORT INFORMATION
  Report Type: 
  Country: None (occurrence: None)
  Receive Date: 20080728
  Receipt Date: 20080711
  Transmission Date: 20090109
  Serious: Yes (Hospitalization)
  Sender: FDA-Public Use
  Company Number: 20080180

PATIENT
  Age: 77 Year
  Sex: Male

DRUGS (8)
  1. VENOFER [Suspect]
     Indication: ANAEMIA
     Dosage: 200 MG, ONCE, INTRAVENOUS DRIP
     Route: 041
     Dates: start: 20080612, end: 20080612
  2. ALLOPURINOL [Concomitant]
  3. INSULIN GLARGINE (INSULIN ANALOUGES) [Concomitant]
  4. ISOSORBIDE MONONITRATE [Concomitant]
  5. RAMIPRIL [Concomitant]
  6. SIMVASTATIN [Concomitant]
  7. TAMSULOSIN HCL [Concomitant]
  8. TRIMETHOPRIM [Concomitant]

REACTIONS (3)
  - PYREXIA [None]
  - TACHYCARDIA [None]
  - TREMOR [None]
